FAERS Safety Report 14310447 (Version 2)
Quarter: 2018Q1

REPORT INFORMATION
  Report Type: Spontaneous
  Country: JP (occurrence: JP)
  Receive Date: 20171220
  Receipt Date: 20180312
  Transmission Date: 20180509
  Serious: Yes (Other)
  Sender: FDA-Public Use
  Company Number: JP-ABBVIE-17P-087-2159788-00

PATIENT

DRUGS (2)
  1. LUPRON DEPOT [Suspect]
     Active Substance: LEUPROLIDE ACETATE
     Indication: SALIVARY GLAND CANCER
     Dosage: 11.25 MG, Q3MONTHS
     Route: 058
  2. BICALUTAMIDE. [Concomitant]
     Active Substance: BICALUTAMIDE
     Indication: SALIVARY GLAND CANCER
     Dosage: 80 MG, QD
     Route: 048

REACTIONS (26)
  - Hypernatraemia [Unknown]
  - Pruritus [Unknown]
  - Dizziness [Unknown]
  - Hot flush [Recovered/Resolved]
  - Constipation [Unknown]
  - Arthralgia [Unknown]
  - White blood cell count increased [Unknown]
  - Gynaecomastia [Unknown]
  - Dysaesthesia pharynx [Unknown]
  - Dysgeusia [Unknown]
  - Hyperkalaemia [Unknown]
  - Malaise [Unknown]
  - Off label use [Unknown]
  - Erythema multiforme [Unknown]
  - Menstruation irregular [Unknown]
  - Blood creatinine increased [Unknown]
  - Device related infection [Unknown]
  - Upper respiratory tract infection [Unknown]
  - Depression [Unknown]
  - Platelet count decreased [Unknown]
  - Aspartate aminotransferase increased [Unknown]
  - Alanine aminotransferase increased [Unknown]
  - Hyponatraemia [Unknown]
  - Penile pain [Unknown]
  - Anaemia [Recovered/Resolved]
  - Pollakiuria [Unknown]
